APPROVED DRUG PRODUCT: PRAMIPEXOLE DIHYDROCHLORIDE
Active Ingredient: PRAMIPEXOLE DIHYDROCHLORIDE
Strength: 0.75MG
Dosage Form/Route: TABLET;ORAL
Application: A207011 | Product #004
Applicant: UNICHEM LABORATORIES LTD
Approved: Dec 19, 2018 | RLD: No | RS: No | Type: DISCN